FAERS Safety Report 19675113 (Version 1)
Quarter: 2021Q3

REPORT INFORMATION
  Report Type: Spontaneous
  Country: US (occurrence: US)
  Receive Date: 20210809
  Receipt Date: 20210809
  Transmission Date: 20211014
  Serious: No
  Sender: FDA-Public Use
  Company Number: US-ROCHE-2725307

PATIENT
  Age: 57 Year
  Sex: Female
  Weight: 61.29 kg

DRUGS (2)
  1. ESTROGEN [Concomitant]
     Active Substance: ESTROGENS
     Indication: HORMONE REPLACEMENT THERAPY
     Route: 048
     Dates: start: 2014
  2. BONIVA [Suspect]
     Active Substance: IBANDRONATE SODIUM
     Indication: OSTEOPENIA
     Dosage: ONGOING: NO
     Route: 048
     Dates: start: 201908, end: 202008

REACTIONS (1)
  - Synovitis [Not Recovered/Not Resolved]

NARRATIVE: CASE EVENT DATE: 202004
